FAERS Safety Report 6709184-3 (Version None)
Quarter: 2010Q2

REPORT INFORMATION
  Report Type: 
  Country: None (occurrence: None)
  Receive Date: 20100423
  Receipt Date: 20091123
  Transmission Date: 20101027
  Serious: No
  Sender: FDA-Public Use
  Company Number: ALL1-2009-03818

PATIENT
  Age: 42 Year
  Sex: Female
  Weight: 68 kg

DRUGS (5)
  1. VYVANSE [Suspect]
     Indication: ATTENTION DEFICIT/HYPERACTIVITY DISORDER
     Dosage: 30 MG, 1X/DAY:QD, ORAL : 60 MG, 1X/DAY:QD, ORAL
     Route: 048
     Dates: start: 20090501, end: 20090501
  2. VYVANSE [Suspect]
     Indication: ATTENTION DEFICIT/HYPERACTIVITY DISORDER
     Dosage: 30 MG, 1X/DAY:QD, ORAL : 60 MG, 1X/DAY:QD, ORAL
     Route: 048
     Dates: start: 20090501
  3. WELLBUTRIN [Concomitant]
  4. PRISTIQ (DESVENLAFAXINE SUCCINATE) [Concomitant]
  5. ROWASA [Concomitant]

REACTIONS (5)
  - ANXIETY [None]
  - CROHN'S DISEASE [None]
  - DECREASED APPETITE [None]
  - DRUG INEFFECTIVE [None]
  - MIGRAINE [None]
